FAERS Safety Report 8430785-9 (Version None)
Quarter: 2012Q2

REPORT INFORMATION
  Report Type: 
  Country: None (occurrence: None)
  Receive Date: 20120612
  Receipt Date: 20120601
  Transmission Date: 20120825
  Serious: Yes (Other)
  Sender: FDA-Public Use
  Company Number: US-RB-040140-12

PATIENT
  Age: 37 Year
  Sex: Female

DRUGS (3)
  1. SUBOXONE [Suspect]
     Indication: DRUG DEPENDENCE
     Route: 060
     Dates: start: 20100201, end: 20110801
  2. METHADONE HCL [Suspect]
     Indication: DRUG DEPENDENCE
     Dosage: UNKNOWN UNIT DOSE
     Route: 048
     Dates: start: 20110801, end: 20110801
  3. BUPRENORPHINE [Suspect]
     Indication: DRUG DEPENDENCE
     Dosage: UNKNOWN DOSAGE DETAILS
     Route: 060
     Dates: start: 20110801, end: 20111119

REACTIONS (5)
  - MATERNAL EXPOSURE DURING PREGNANCY [None]
  - SUPPRESSED LACTATION [None]
  - SUBSTANCE ABUSE [None]
  - DRUG ABUSE [None]
  - PREMATURE DELIVERY [None]
